FAERS Safety Report 9689109 (Version 2)
Quarter: 2013Q4

REPORT INFORMATION
  Report Type: Spontaneous
  Country: JP (occurrence: JP)
  Receive Date: 20131114
  Receipt Date: 20131114
  Transmission Date: 20140711
  Serious: Yes (Hospitalization)
  Sender: FDA-Public Use
  Company Number: JP-ASTRAZENECA-2013SE78990

PATIENT
  Age: 57 Year
  Sex: Male

DRUGS (2)
  1. NEXIUM [Suspect]
     Indication: GASTROOESOPHAGEAL REFLUX DISEASE
     Dosage: DOSE UNKNOWN
     Route: 048
     Dates: end: 201310
  2. ANTIHYPERTENSIVES [Concomitant]
     Route: 048

REACTIONS (3)
  - Hiccups [Recovered/Resolved]
  - Aphagia [Recovered/Resolved]
  - Dysgeusia [Recovered/Resolved]
